FAERS Safety Report 7401205-8 (Version None)
Quarter: 2011Q2

REPORT INFORMATION
  Report Type: 
  Country: None (occurrence: None)
  Receive Date: 20110407
  Receipt Date: 20110405
  Transmission Date: 20111010
  Serious: Yes (Other)
  Sender: FDA-Public Use
  Company Number: CHPA2011GB04930

PATIENT
  Age: 58 Year
  Sex: Female

DRUGS (5)
  1. NICOTINE [Suspect]
     Indication: SMOKING CESSATION THERAPY
     Dosage: UNK, UNK
     Route: 062
     Dates: start: 20040628, end: 20040629
  2. PERSANTIN [Concomitant]
     Dosage: UNK, UNK
     Route: 048
  3. NITROGLYCERIN [Concomitant]
     Dosage: UNK, UNK
     Route: 065
  4. ZOCOR [Concomitant]
     Dosage: UNK, UNK
     Route: 048
  5. ASPIRIN [Concomitant]
     Dosage: UNK, UNK
     Route: 048

REACTIONS (2)
  - TRANSIENT ISCHAEMIC ATTACK [None]
  - CEREBROVASCULAR ACCIDENT [None]
